FAERS Safety Report 6248118-5 (Version None)
Quarter: 2009Q2

REPORT INFORMATION
  Report Type: 
  Country: None (occurrence: None)
  Receive Date: 20090624
  Receipt Date: 20090624
  Transmission Date: 20091009
  Serious: Yes (Other)
  Sender: FDA-Public Use
  Company Number: None

PATIENT
  Sex: Male
  Weight: 72.5755 kg

DRUGS (4)
  1. RISPERIDONE [Suspect]
     Indication: AGGRESSION
     Dosage: 0.25 MG PO BID
     Route: 048
     Dates: start: 20090613, end: 20090622
  2. RISPERIDONE [Suspect]
     Indication: AUTISM
     Dosage: 0.25 MG PO BID
     Route: 048
     Dates: start: 20090613, end: 20090622
  3. LAMICTAL [Concomitant]
  4. LUVOX [Concomitant]

REACTIONS (4)
  - AGGRESSION [None]
  - IRRITABILITY [None]
  - NECK INJURY [None]
  - TOOTH FRACTURE [None]
